FAERS Safety Report 12591810 (Version 1)
Quarter: 2016Q3

REPORT INFORMATION
  Report Type: Spontaneous
  Country: US (occurrence: None)
  Receive Date: 20160725
  Receipt Date: 20160725
  Transmission Date: 20161109
  Serious: Yes (Disabling, Other)
  Sender: FDA-Public Use
  Company Number: None

PATIENT
  Age: 55 Year
  Sex: Female
  Weight: 70.31 kg

DRUGS (12)
  1. LASIX [Concomitant]
     Active Substance: FUROSEMIDE
  2. PROGRAF [Concomitant]
     Active Substance: TACROLIMUS\TACROLIMUS ANHYDROUS
  3. CELEXA [Concomitant]
     Active Substance: CITALOPRAM HYDROBROMIDE
  4. CALCITRIOL. [Concomitant]
     Active Substance: CALCITRIOL
  5. VITAMIN D [Concomitant]
     Active Substance: CHOLECALCIFEROL
  6. ENTERIC COATED ASPIRIN [Concomitant]
     Active Substance: ASPIRIN
  7. LISINOPRIL. [Concomitant]
     Active Substance: LISINOPRIL
  8. TRAZODONE [Concomitant]
     Active Substance: TRAZODONE HYDROCHLORIDE
  9. IMURAN [Concomitant]
     Active Substance: AZATHIOPRINE
  10. PRAVASTATIN. [Concomitant]
     Active Substance: PRAVASTATIN
  11. PREDNISONE. [Concomitant]
     Active Substance: PREDNISONE
  12. CILOSTAZOL. [Suspect]
     Active Substance: CILOSTAZOL
     Indication: INTERMITTENT CLAUDICATION
     Dosage: CILOSTAZOL 50 MG?2 TABLETS TWICE A DAY?TAKEN BY MOUTH
     Route: 048
     Dates: start: 20160501, end: 20160617

REACTIONS (3)
  - Blood creatinine increased [None]
  - Dehydration [None]
  - Diarrhoea [None]

NARRATIVE: CASE EVENT DATE: 20160601
